FAERS Safety Report 6903262-1 (Version None)
Quarter: 2010Q3

REPORT INFORMATION
  Report Type: 
  Country: None (occurrence: None)
  Receive Date: 20100803
  Receipt Date: 20080826
  Transmission Date: 20110219
  Serious: No
  Sender: FDA-Public Use
  Company Number: US-PFIZER INC-2008071745

PATIENT
  Sex: Female
  Weight: 55.34 kg

DRUGS (7)
  1. LYRICA [Suspect]
     Indication: HERPES ZOSTER
     Dates: start: 20070601
  2. LYRICA [Suspect]
     Indication: FIBROMYALGIA
  3. LIDOCAINE [Suspect]
     Dates: start: 20080801
  4. MORPHINE [Concomitant]
  5. PERCOCET [Concomitant]
  6. SOMA [Concomitant]
  7. TOPAMAX [Concomitant]

REACTIONS (9)
  - ABNORMAL SENSATION IN EYE [None]
  - ALOPECIA [None]
  - EYE PAIN [None]
  - FEELING ABNORMAL [None]
  - HEADACHE [None]
  - SOMNOLENCE [None]
  - THIRST [None]
  - TRICHORRHEXIS [None]
  - VISUAL IMPAIRMENT [None]
